FAERS Safety Report 25952540 (Version 1)
Quarter: 2025Q4

REPORT INFORMATION
  Report Type: Report from Study
  Country: US (occurrence: US)
  Receive Date: 20251023
  Receipt Date: 20251023
  Transmission Date: 20260118
  Serious: Yes (Other)
  Sender: ALEXION PHARMACEUTICALS
  Company Number: US-ASTRAZENECA-202510NAM018269US

PATIENT
  Age: 42 Year
  Sex: Female

DRUGS (1)
  1. STRENSIQ [Suspect]
     Active Substance: ASFOTASE ALFA
     Indication: Phosphorus metabolism disorder
     Dosage: 2 MILLIGRAM/KILOGRAM, TIW
     Route: 065

REACTIONS (22)
  - Seizure [Unknown]
  - Injection site reaction [Unknown]
  - Malaise [Unknown]
  - Fatigue [Unknown]
  - Presyncope [Unknown]
  - Skin discolouration [Unknown]
  - Arthritis [Unknown]
  - Asthenia [Unknown]
  - Headache [Unknown]
  - Dizziness [Unknown]
  - Balance disorder [Unknown]
  - Sensory disturbance [Unknown]
  - Vertigo [Unknown]
  - Muscular weakness [Unknown]
  - Cellulitis [Unknown]
  - Back pain [Unknown]
  - Arthralgia [Unknown]
  - Joint swelling [Unknown]
  - Muscle spasms [Unknown]
  - Myalgia [Unknown]
  - Neck pain [Unknown]
  - Musculoskeletal stiffness [Unknown]
